FAERS Safety Report 16447441 (Version 3)
Quarter: 2020Q1

REPORT INFORMATION
  Report Type: Report from Study
  Country: ES (occurrence: ES)
  Receive Date: 20190619
  Receipt Date: 20200103
  Transmission Date: 20200409
  Serious: Yes (Hospitalization, Other)
  Sender: FDA-Public Use
  Company Number: ES-BRISTOL-MYERS SQUIBB COMPANY-BMS-2018-060486

PATIENT
  Age: 45 Year
  Sex: Male
  Weight: 70 kg

DRUGS (7)
  1. LEXATIN [BROMAZEPAM] [Concomitant]
     Active Substance: BROMAZEPAM
     Indication: PROPHYLAXIS
     Dosage: 1.5 MG, DAILY
     Route: 048
     Dates: start: 20180109
  2. APIXABAN [Suspect]
     Active Substance: APIXABAN
     Indication: PULMONARY EMBOLISM
     Dosage: 10 MILLIGRAM, DAILY
     Route: 048
     Dates: start: 20180405, end: 20181001
  3. ONDANSETRON [Concomitant]
     Active Substance: ONDANSETRON
     Indication: PROPHYLAXIS
     Dosage: 4 MILLIGRAM, PRN
     Route: 065
     Dates: start: 20180622, end: 20180724
  4. PARACETAMOL [Concomitant]
     Active Substance: ACETAMINOPHEN
     Indication: PROPHYLAXIS
     Dosage: 1 G, PRN
     Route: 048
     Dates: start: 20180109
  5. ESCITALOPRAM [Concomitant]
     Active Substance: ESCITALOPRAM OXALATE
     Indication: PROPHYLAXIS
     Dosage: 20 MG, DAILY
     Route: 048
     Dates: start: 20180109
  6. DESVENLAFAXINE. [Concomitant]
     Active Substance: DESVENLAFAXINE
     Indication: PROPHYLAXIS
     Dosage: 100 MILLIGRAM, DAILY
     Route: 048
     Dates: start: 20180622, end: 20180627
  7. NOLOTIL [METAMIZOLE MAGNESIUM] [Concomitant]
     Active Substance: METAMIZOLE MAGNESIUM
     Indication: PROPHYLAXIS
     Dosage: 575 MG, PRN
     Route: 048
     Dates: start: 20180109

REACTIONS (6)
  - Cholangitis acute [Unknown]
  - Tumour obstruction [Unknown]
  - Surgery [Recovered/Resolved]
  - Enterococcal infection [Unknown]
  - Anaemia [Unknown]
  - Klebsiella test positive [Unknown]

NARRATIVE: CASE EVENT DATE: 20180622
